FAERS Safety Report 21372082 (Version 6)
Quarter: 2023Q1

REPORT INFORMATION
  Report Type: Report from Study
  Country: CN (occurrence: CN)
  Receive Date: 20220923
  Receipt Date: 20230310
  Transmission Date: 20230418
  Serious: Yes (Other)
  Sender: FDA-Public Use
  Company Number: CN-FOSUNKITE-FOSUNKITE-20220339

PATIENT
  Age: 53 Year
  Sex: Male

DRUGS (18)
  1. AXICABTAGENE CILOLEUCEL [Suspect]
     Active Substance: AXICABTAGENE CILOLEUCEL
     Indication: Non-Hodgkin^s lymphoma
     Dosage: 1.5?10^8 CELLS (NUMBER OF CAR-T CELLS)
     Route: 065
     Dates: start: 20220110, end: 20220110
  2. ETOPOSIDE [Concomitant]
     Active Substance: ETOPOSIDE
     Indication: Lymphodepletion
     Dosage: 370 MG
     Route: 041
     Dates: start: 20211231, end: 20220104
  3. CYTARABINE [Concomitant]
     Active Substance: CYTARABINE
     Indication: Lymphodepletion
     Dosage: 750 MG
     Route: 041
     Dates: start: 20211231, end: 20220104
  4. MELPHALAN HYDROCHLORIDE [Concomitant]
     Active Substance: MELPHALAN HYDROCHLORIDE
     Indication: Lymphodepletion
     Dosage: 50 MG
     Route: 041
     Dates: start: 20220101
  5. SINTILIMAB [Concomitant]
     Active Substance: SINTILIMAB
     Indication: Non-Hodgkin^s lymphoma
     Dosage: CUMULATIVE DOSE OF 100 MG FOR 1 CYCLE
     Route: 041
     Dates: start: 20220209, end: 20220209
  6. SINTILIMAB [Concomitant]
     Active Substance: SINTILIMAB
     Dosage: CUMULATIVE DOSE OF 200MG FOR 4 CYCLES
     Route: 041
     Dates: start: 20220627, end: 20220627
  7. SINTILIMAB [Concomitant]
     Active Substance: SINTILIMAB
     Dosage: CUMULATIVE DOSE OF 200 MG FOR 2 CYCLES
     Route: 041
     Dates: start: 20220309, end: 20220309
  8. SINTILIMAB [Concomitant]
     Active Substance: SINTILIMAB
     Dosage: UNK
     Route: 041
     Dates: start: 20220520, end: 20220520
  9. HUMAN IMMUNOGLOBULIN G [Concomitant]
     Active Substance: HUMAN IMMUNOGLOBULIN G
     Indication: Immune system disorder
     Dosage: UNK
     Dates: start: 20220520, end: 20220520
  10. HUMAN IMMUNOGLOBULIN G [Concomitant]
     Active Substance: HUMAN IMMUNOGLOBULIN G
     Dosage: 5 G, QD
     Route: 042
     Dates: start: 20220117, end: 20220117
  11. HUMAN IMMUNOGLOBULIN G [Concomitant]
     Active Substance: HUMAN IMMUNOGLOBULIN G
     Dosage: 15 G, QD
     Route: 042
     Dates: start: 20220118, end: 20220118
  12. HUMAN IMMUNOGLOBULIN G [Concomitant]
     Active Substance: HUMAN IMMUNOGLOBULIN G
     Dosage: 20 G, QD
     Route: 042
     Dates: start: 20220309, end: 20220310
  13. AZACITIDINE [Concomitant]
     Active Substance: AZACITIDINE
     Indication: Non-Hodgkin^s lymphoma
     Dosage: UNK
     Route: 041
     Dates: start: 20220517, end: 20220517
  14. AZACITIDINE [Concomitant]
     Active Substance: AZACITIDINE
     Dosage: UNK
     Route: 041
     Dates: start: 20220628, end: 20220704
  15. ZANUBRUTINIB [Concomitant]
     Active Substance: ZANUBRUTINIB
     Indication: Non-Hodgkin^s lymphoma
     Dosage: CUMULATIVE DOSE OF 160 MG FOR 1 CYCLE
     Route: 041
     Dates: start: 20220412, end: 20220412
  16. ZANUBRUTINIB [Concomitant]
     Active Substance: ZANUBRUTINIB
     Dosage: UNK
     Route: 041
     Dates: start: 20220517, end: 20220517
  17. DECITABINE [Concomitant]
     Active Substance: DECITABINE
     Indication: Non-Hodgkin^s lymphoma
     Dosage: CUMULATIVE DOSE OF 10 MG FOR 1 CYCLE
     Route: 041
     Dates: start: 20220412, end: 20220416
  18. FLUDARABINE PHOSPHATE [Concomitant]
     Active Substance: FLUDARABINE PHOSPHATE
     Indication: Lymphodepletion
     Dosage: 50 MG
     Route: 041
     Dates: start: 20211231, end: 20220103

REACTIONS (38)
  - Hypogammaglobulinaemia [Not Recovered/Not Resolved]
  - Cytokine release syndrome [Recovered/Resolved]
  - Hypokalaemia [Recovered/Resolved]
  - Hypoalbuminaemia [Recovered/Resolved]
  - Hypoglobulinaemia [Not Recovered/Not Resolved]
  - Alanine aminotransferase increased [Recovered/Resolved]
  - Aspartate aminotransferase increased [Recovered/Resolved]
  - Blood alkaline phosphatase increased [Recovered/Resolved]
  - Hypophosphataemia [Recovered/Resolved]
  - Hypomagnesaemia [Recovered/Resolved]
  - Hypocalcaemia [Recovered/Resolved]
  - White blood cell count decreased [Recovered/Resolved]
  - Neutrophil count decreased [Recovered/Resolved]
  - Lymphocyte count decreased [Recovered/Resolved]
  - Platelet count decreased [Recovered/Resolved]
  - Anaemia [Not Recovered/Not Resolved]
  - C-reactive protein increased [Not Recovered/Not Resolved]
  - Blood lactate dehydrogenase increased [Recovered/Resolved]
  - Serum ferritin increased [Not Recovered/Not Resolved]
  - Procalcitonin increased [Recovered/Resolved]
  - Gamma-glutamyltransferase increased [Not Recovered/Not Resolved]
  - Interleukin-2 receptor increased [Not Recovered/Not Resolved]
  - Interleukin level increased [Not Recovered/Not Resolved]
  - Interleukin level increased [Recovered/Resolved]
  - Interleukin level increased [Recovered/Resolved]
  - Interleukin level increased [Not Recovered/Not Resolved]
  - Interleukin level increased [Recovered/Resolved]
  - Alpha tumour necrosis factor increased [Not Recovered/Not Resolved]
  - Interleukin level increased [Not Recovered/Not Resolved]
  - Interleukin level increased [Not Recovered/Not Resolved]
  - Interferon gamma level increased [Not Recovered/Not Resolved]
  - Prothrombin time prolonged [Not Recovered/Not Resolved]
  - N-terminal prohormone brain natriuretic peptide increased [Not Recovered/Not Resolved]
  - Hyponatraemia [Recovered/Resolved]
  - Hypochloraemia [Recovered/Resolved]
  - Interleukin level increased [Recovered/Resolved]
  - Hyponatraemia [Recovered/Resolved]
  - Serum ferritin increased [Not Recovered/Not Resolved]

NARRATIVE: CASE EVENT DATE: 20220110
